FAERS Safety Report 6067855-9 (Version None)
Quarter: 2009Q1

REPORT INFORMATION
  Report Type: 
  Country: None (occurrence: None)
  Receive Date: 20090202
  Receipt Date: 20090122
  Transmission Date: 20090719
  Serious: Yes (Death, Hospitalization, Other)
  Sender: FDA-Public Use
  Company Number: 2008-03885

PATIENT
  Age: 19 Year
  Sex: Male
  Weight: 55.3 kg

DRUGS (4)
  1. VELCADE [Suspect]
     Indication: ACUTE MYELOID LEUKAEMIA
     Dosage: 1 MG/M2, IV BOLUS
     Route: 040
     Dates: start: 20081002, end: 20081005
  2. CYTARABINE [Suspect]
     Indication: ACUTE MYELOID LEUKAEMIA
     Dosage: INTRATHECAL
     Route: 037
     Dates: start: 20081001
  3. CYTARABINE [Suspect]
     Indication: ACUTE MYELOID LEUKAEMIA
     Dosage: 1000 MG/M2, INTRAVENOUS
     Route: 042
     Dates: end: 20081006
  4. ETOPOSIDE [Suspect]
     Indication: ACUTE MYELOID LEUKAEMIA
     Dosage: 150 MG/M2; INTRAVENOUS
     Route: 042
     Dates: start: 20081002, end: 20081006

REACTIONS (29)
  - ACUTE RESPIRATORY DISTRESS SYNDROME [None]
  - AGITATION [None]
  - BLOOD CREATININE INCREASED [None]
  - CONTINUOUS HAEMODIAFILTRATION [None]
  - CREPITATIONS [None]
  - DIALYSIS [None]
  - DYSPNOEA [None]
  - FLUID OVERLOAD [None]
  - GAMMA-GLUTAMYLTRANSFERASE INCREASED [None]
  - HEADACHE [None]
  - HYPERBILIRUBINAEMIA [None]
  - HYPOCALCAEMIA [None]
  - HYPOKALAEMIA [None]
  - HYPOMAGNESAEMIA [None]
  - HYPOPHOSPHATAEMIA [None]
  - HYPOTENSION [None]
  - HYPOXIA [None]
  - INTERSTITIAL LUNG DISEASE [None]
  - LUNG INFECTION [None]
  - MUSCULOSKELETAL PAIN [None]
  - NECK PAIN [None]
  - NO THERAPEUTIC RESPONSE [None]
  - PLEURAL EFFUSION [None]
  - PULMONARY CONGESTION [None]
  - PYREXIA [None]
  - RENAL FAILURE [None]
  - RESTLESSNESS [None]
  - TACHYCARDIA [None]
  - TACHYPNOEA [None]
